FAERS Safety Report 25536963 (Version 1)
Quarter: 2025Q3

REPORT INFORMATION
  Report Type: Other
  Country: CH (occurrence: CH)
  Receive Date: 20250710
  Receipt Date: 20250710
  Transmission Date: 20251021
  Serious: Yes (Death, Other)
  Sender: LYNE LABORATORIES
  Company Number: CH-Lyne Laboratories Inc.-2180233

PATIENT
  Age: 55 Year
  Sex: Female

DRUGS (4)
  1. DEXAMETHASONE [Suspect]
     Active Substance: DEXAMETHASONE
     Indication: Demyelination
     Dates: start: 20210309, end: 20210401
  2. METHYLPREDNISOLONE [Suspect]
     Active Substance: METHYLPREDNISOLONE
     Dates: start: 20210528, end: 20210530
  3. RITUXIMAB [Suspect]
     Active Substance: RITUXIMAB
     Dates: start: 20210722
  4. PREDNISOLONE [Suspect]
     Active Substance: PREDNISOLONE
     Dates: start: 20210719

REACTIONS (3)
  - Anaplastic thyroid cancer [Fatal]
  - Product use in unapproved indication [Unknown]
  - Condition aggravated [Fatal]

NARRATIVE: CASE EVENT DATE: 20210309
